FAERS Safety Report 7522635-X (Version None)
Quarter: 2011Q2

REPORT INFORMATION
  Report Type: 
  Country: None (occurrence: None)
  Receive Date: 20110603
  Receipt Date: 20110509
  Transmission Date: 20111010
  Serious: Yes (Death, Hospitalization)
  Sender: FDA-Public Use
  Company Number: JP-SANOFI-AVENTIS-2011SA034042

PATIENT
  Age: 63 Year
  Sex: Male

DRUGS (13)
  1. ONCOVIN [Suspect]
     Indication: FOLLICLE CENTRE LYMPHOMA, FOLLICULAR GRADE I, II, III STAGE IV
     Route: 065
  2. PREDNISONE [Suspect]
     Dosage: REGIMEN #1
     Route: 065
  3. OFORTA [Suspect]
     Route: 065
  4. IBRITUMOMAB TIUXETAN [Suspect]
     Indication: FOLLICLE CENTRE LYMPHOMA, FOLLICULAR GRADE I, II, III STAGE IV
     Route: 065
  5. RITUXIMAB [Suspect]
     Indication: FOLLICLE CENTRE LYMPHOMA, FOLLICULAR GRADE I, II, III STAGE IV
     Route: 065
  6. OFORTA [Suspect]
     Indication: CORD BLOOD TRANSPLANT THERAPY
     Route: 065
  7. OFORTA [Suspect]
     Indication: FOLLICLE CENTRE LYMPHOMA, FOLLICULAR GRADE I, II, III STAGE IV
     Route: 065
  8. OFORTA [Suspect]
     Route: 065
  9. BUSULFAN [Suspect]
     Indication: FOLLICLE CENTRE LYMPHOMA, FOLLICULAR GRADE I, II, III STAGE IV
  10. PREDNISONE [Suspect]
     Indication: FOLLICLE CENTRE LYMPHOMA, FOLLICULAR GRADE I, II, III STAGE IV
     Dosage: REGIMEN #1
     Route: 065
  11. CYCLOPHOSPHAMIDE [Suspect]
     Dosage: DOSE 2
     Route: 065
  12. ETOPOSIDE [Suspect]
     Indication: FOLLICLE CENTRE LYMPHOMA, FOLLICULAR GRADE I, II, III STAGE IV
     Route: 065
  13. CYCLOPHOSPHAMIDE [Suspect]
     Indication: FOLLICLE CENTRE LYMPHOMA, FOLLICULAR GRADE I, II, III STAGE IV
     Dosage: DOSE 1
     Route: 065

REACTIONS (4)
  - ERYTHROLEUKAEMIA [None]
  - EXTRADURAL HAEMATOMA [None]
  - DEATH [None]
  - MENINGEAL DISORDER [None]
